FAERS Safety Report 17332394 (Version 2)
Quarter: 2020Q1

REPORT INFORMATION
  Report Type: Spontaneous
  Country: JP (occurrence: JP)
  Receive Date: 20200128
  Receipt Date: 20200218
  Transmission Date: 20200409
  Serious: Yes (Death, Hospitalization)
  Sender: FDA-Public Use
  Company Number: JP-ELI_LILLY_AND_COMPANY-JP201911008100

PATIENT
  Age: 80 Year
  Sex: Female

DRUGS (2)
  1. OLUMIANT [Suspect]
     Active Substance: BARICITINIB
     Indication: RHEUMATOID ARTHRITIS
     Dosage: 4 MG, DAILY
     Route: 048
     Dates: start: 20190513, end: 201910
  2. PREDNISOLONE. [Concomitant]
     Active Substance: PREDNISOLONE
     Indication: RHEUMATOID ARTHRITIS

REACTIONS (4)
  - Blood creatine phosphokinase increased [Not Recovered/Not Resolved]
  - Interstitial lung disease [Fatal]
  - Cardiac failure congestive [Fatal]
  - Polymyositis [Not Recovered/Not Resolved]

NARRATIVE: CASE EVENT DATE: 20190527
